FAERS Safety Report 7402016-X (Version None)
Quarter: 2011Q2

REPORT INFORMATION
  Report Type: 
  Country: None (occurrence: None)
  Receive Date: 20110408
  Receipt Date: 20110328
  Transmission Date: 20111010
  Serious: Yes (Other)
  Sender: FDA-Public Use
  Company Number: US-BAYER-2011-026883

PATIENT
  Sex: Female

DRUGS (1)
  1. MIRENA [Suspect]
     Dosage: 20 ?G, CONT
     Route: 015
     Dates: start: 20110201, end: 20110301

REACTIONS (3)
  - COMPLICATION OF DEVICE REMOVAL [None]
  - GENITAL DISCHARGE [None]
  - GENITAL HAEMORRHAGE [None]
